FAERS Safety Report 5977616-4 (Version None)
Quarter: 2008Q4

REPORT INFORMATION
  Report Type: 
  Country: None (occurrence: None)
  Receive Date: 20081203
  Receipt Date: 20081126
  Transmission Date: 20090506
  Serious: Yes (Hospitalization)
  Sender: FDA-Public Use
  Company Number: PT-MERCK-0810PRT00001

PATIENT
  Age: 82 Year
  Sex: Male

DRUGS (6)
  1. JANUVIA [Suspect]
     Indication: TYPE 2 DIABETES MELLITUS
     Route: 048
     Dates: start: 20080901
  2. METFORMIN [Concomitant]
     Route: 048
  3. METFORMIN [Concomitant]
     Route: 048
  4. ACARBOSE [Concomitant]
     Route: 065
     Dates: end: 20080901
  5. IRON (UNSPECIFIED) [Concomitant]
     Route: 065
  6. DIURETIC (UNSPECIFIED) [Concomitant]
     Route: 065

REACTIONS (1)
  - HYPOGLYCAEMIA [None]
